FAERS Safety Report 5128037-8 (Version None)
Quarter: 2006Q4

REPORT INFORMATION
  Report Type: 
  Country: None (occurrence: None)
  Receive Date: 20061010
  Receipt Date: 20060927
  Transmission Date: 20070319
  Serious: Yes (Other)
  Sender: FDA-Public Use
  Company Number: 2006117130

PATIENT
  Age: 41 Year
  Sex: Female

DRUGS (1)
  1. DOSTINEX [Suspect]
     Indication: LACTATION PUERPERAL INCREASED
     Dosage: 0.5 MG (0.25 MG, 2 IN 1 D), ORAL
     Route: 048
     Dates: start: 20060827

REACTIONS (5)
  - DYSPNOEA [None]
  - HYPERHIDROSIS [None]
  - NAUSEA [None]
  - SOMNOLENCE [None]
  - SYNCOPE [None]
